FAERS Safety Report 5875881-5 (Version None)
Quarter: 2008Q3

REPORT INFORMATION
  Report Type: 
  Country: None (occurrence: None)
  Receive Date: 20080905
  Receipt Date: 20071203
  Transmission Date: 20090109
  Serious: Yes (Other)
  Sender: FDA-Public Use
  Company Number: 2008S1011862

PATIENT
  Sex: Female

DRUGS (3)
  1. AMLODIPINE [Suspect]
     Indication: BLOOD PRESSURE
     Dosage: 1 DF; DAILY; ORAL
     Route: 048
     Dates: start: 20071020, end: 20071025
  2. OMEPRAZOLE [Concomitant]
  3. PROTHIADEN /00160401/ [Concomitant]

REACTIONS (5)
  - BALANCE DISORDER [None]
  - CHEST PAIN [None]
  - PAIN IN EXTREMITY [None]
  - TREMOR [None]
  - VISUAL ACUITY REDUCED [None]
